FAERS Safety Report 8117152 (Version 6)
Quarter: 2013Q3

REPORT INFORMATION
  Report Type: Spontaneous
  Country: US (occurrence: US)
  Receive Date: 20110901
  Receipt Date: 20130917
  Transmission Date: 20140515
  Serious: Yes (Other)
  Sender: FDA-Public Use
  Company Number: US-ROCHE-798718

PATIENT
  Age: 37 Year
  Sex: Female
  Weight: 63.56 kg

DRUGS (1)
  1. ACCUTANE [Suspect]
     Indication: ACNE
     Route: 065
     Dates: start: 20000523, end: 20010131

REACTIONS (9)
  - Injury [Unknown]
  - Colitis ulcerative [Unknown]
  - Anxiety [Unknown]
  - Depression [Unknown]
  - Inflammatory bowel disease [Unknown]
  - Haemorrhoids [Unknown]
  - Large intestine polyp [Unknown]
  - Lip dry [Unknown]
  - Rhinitis allergic [Unknown]
